FAERS Safety Report 9733833 (Version 2)
Quarter: 2014Q1

REPORT INFORMATION
  Report Type: Spontaneous
  Country: US (occurrence: US)
  Receive Date: 20131205
  Receipt Date: 20140106
  Transmission Date: 20141002
  Serious: Yes (Hospitalization)
  Sender: FDA-Public Use
  Company Number: US-BAYER-2013-147485

PATIENT
  Age: 54 Year
  Sex: Female

DRUGS (12)
  1. YASMIN [Suspect]
  2. HUMULIN 70/30 [Concomitant]
     Dosage: 60 U, EVERY MORNING
  3. HUMULIN 70/30 [Concomitant]
     Dosage: 55 UNITS QPM ( EVERY EVENING
     Dates: start: 20021203, end: 20031108
  4. NEURONTIN [Concomitant]
     Indication: NEUROPATHY PERIPHERAL
     Dosage: 300 MG, BID
     Dates: start: 20030130, end: 20030818
  5. SPIRONOLACTONE [Concomitant]
     Dosage: 100 MG, QD
     Dates: start: 20030211, end: 20040209
  6. GLUCOPHAGE [Concomitant]
     Dosage: 1000 MG, UNK
     Dates: start: 20030211, end: 20040818
  7. LANTUS [Concomitant]
     Dosage: 70 U, BID
     Route: 023
     Dates: start: 20030211, end: 20030707
  8. PRANDIN [Concomitant]
     Dosage: 2 MG, BEFORE MEALS
     Dates: start: 20030212, end: 20030818
  9. LEVOXYL [Concomitant]
     Dosage: 0.075 MG, QD
     Dates: start: 20030224, end: 20031014
  10. MERIDIA [Concomitant]
     Dosage: 10 MG, QD
     Dates: start: 20030712, end: 20030908
  11. AVAPRO [Concomitant]
     Dosage: 150 MG, QD
     Dates: start: 20030415, end: 20030818
  12. TRAZODONE [Concomitant]
     Dosage: 100 MG, UNK
     Dates: start: 20030717

REACTIONS (3)
  - Pulmonary embolism [Recovering/Resolving]
  - Deep vein thrombosis [Recovering/Resolving]
  - Off label use [None]
